FAERS Safety Report 9469801 (Version 2)
Quarter: 2013Q3

REPORT INFORMATION
  Report Type: Report from Study
  Country: CA (occurrence: CA)
  Receive Date: 20130822
  Receipt Date: 20130827
  Transmission Date: 20140515
  Serious: Yes (Other)
  Sender: FDA-Public Use
  Company Number: CA-JNJFOC-20130805578

PATIENT
  Age: 22 Year
  Sex: Female
  Weight: 52.5 kg

DRUGS (4)
  1. REMICADE [Suspect]
     Indication: CROHN^S DISEASE
     Route: 042
     Dates: start: 20121113
  2. CIPROLEX [Concomitant]
     Route: 065
  3. B12 [Concomitant]
     Route: 065
  4. WELLBUTRIN SR [Concomitant]
     Route: 065

REACTIONS (2)
  - Drain placement [Unknown]
  - Exposure during pregnancy [Not Recovered/Not Resolved]
